FAERS Safety Report 24291438 (Version 1)
Quarter: 2024Q3

REPORT INFORMATION
  Report Type: Spontaneous
  Country: US (occurrence: None)
  Receive Date: 20240906
  Receipt Date: 20240906
  Transmission Date: 20241017
  Serious: No
  Sender: DOMPE FARMACEUTICI
  Company Number: US-FARMAPROD-202309-2663

PATIENT
  Age: 79 Year
  Sex: Female
  Weight: 81.01 kg

DRUGS (9)
  1. OXERVATE [Suspect]
     Active Substance: CENEGERMIN-BKBJ
     Indication: Neurotrophic keratopathy
     Route: 047
     Dates: start: 20230808
  2. CYANOCOBALAMIN [Concomitant]
     Active Substance: CYANOCOBALAMIN
  3. FISH OIL [Concomitant]
     Active Substance: FISH OIL
  4. DILTIAZEM [Concomitant]
     Active Substance: DILTIAZEM
     Dosage: 12H
  5. ASCORBIC ACID [Concomitant]
     Active Substance: ASCORBIC ACID
  6. VITAMIN D3 [Concomitant]
     Active Substance: CHOLECALCIFEROL
  7. PAIN RELIEVER [Concomitant]
     Active Substance: ACETAMINOPHEN\IBUPROFEN
     Dosage: 250-250-65
  8. ELIQUIS [Concomitant]
     Active Substance: APIXABAN
  9. FLUOROMETHOLONE [Concomitant]
     Active Substance: FLUOROMETHOLONE

REACTIONS (2)
  - Dry eye [Unknown]
  - Photophobia [Unknown]
